FAERS Safety Report 7823492-4 (Version None)
Quarter: 2011Q4

REPORT INFORMATION
  Report Type: 
  Country: None (occurrence: None)
  Receive Date: 20111019
  Receipt Date: 20111014
  Transmission Date: 20120403
  Serious: Yes (Hospitalization)
  Sender: FDA-Public Use
  Company Number: FR-PFIZER INC-2011245727

PATIENT
  Age: 89 Year
  Sex: Male

DRUGS (4)
  1. EFFEXOR XR [Suspect]
     Dosage: 75 MG, 1X/DAY
     Route: 048
     Dates: start: 20110620, end: 20110701
  2. ALDACTONE [Suspect]
     Dosage: UNSPECIFIED DOSE
     Route: 048
     Dates: start: 20090728, end: 20110701
  3. LASIX [Suspect]
     Dosage: UNSPECIFIED DOSE
     Route: 048
     Dates: start: 20090201, end: 20110701
  4. OMEPRAZOLE [Suspect]
     Dosage: 1 DF, 1X/DAY
     Route: 048
     Dates: start: 20100617, end: 20110701

REACTIONS (2)
  - FALL [None]
  - HYPONATRAEMIA [None]
